FAERS Safety Report 19059426 (Version 3)
Quarter: 2021Q2

REPORT INFORMATION
  Report Type: Spontaneous
  Country: US (occurrence: US)
  Receive Date: 20210325
  Receipt Date: 20210614
  Transmission Date: 20210717
  Serious: Yes (Hospitalization, Other)
  Sender: FDA-Public Use
  Company Number: US-ALKERMES INC.-ALK-2021-001385

PATIENT
  Age: 23 Year
  Sex: Female
  Weight: 71.29 kg

DRUGS (1)
  1. VIVITROL [Suspect]
     Active Substance: NALTREXONE
     Indication: DRUG DEPENDENCE
     Dosage: 380 MILLIGRAM, QMO
     Route: 030
     Dates: start: 20210125

REACTIONS (2)
  - Cholelithiasis [Recovered/Resolved]
  - Inadequate analgesia [Unknown]

NARRATIVE: CASE EVENT DATE: 20210312
